FAERS Safety Report 14683266 (Version 1)
Quarter: 2018Q1

REPORT INFORMATION
  Report Type: Spontaneous
  Country: US (occurrence: US)
  Receive Date: 20180326
  Receipt Date: 20180326
  Transmission Date: 20180509
  Serious: No
  Sender: FDA-Public Use
  Company Number: None

PATIENT
  Age: 89 Year
  Sex: Female
  Weight: 72.58 kg

DRUGS (6)
  1. AMMONIUM LACTATE 12% CREAM [Suspect]
     Active Substance: AMMONIUM LACTATE
     Indication: PAIN IN EXTREMITY
     Dosage: DOSE - 1 BOTTLE
     Route: 061
     Dates: start: 20180303, end: 20180310
  2. ATORVASTATIN [Concomitant]
     Active Substance: ATORVASTATIN
  3. MULTIVITAMIN [Concomitant]
     Active Substance: VITAMINS
  4. VITAMIN D3 [Concomitant]
     Active Substance: CHOLECALCIFEROL
  5. ANASTROZOLE. [Concomitant]
     Active Substance: ANASTROZOLE
  6. BABY ASPIRIN [Concomitant]
     Active Substance: ASPIRIN

REACTIONS (2)
  - Rash pruritic [None]
  - Rash [None]

NARRATIVE: CASE EVENT DATE: 201803
